FAERS Safety Report 8381547-2 (Version None)
Quarter: 2012Q2

REPORT INFORMATION
  Report Type: 
  Country: None (occurrence: None)
  Receive Date: 20120523
  Receipt Date: 20120518
  Transmission Date: 20120825
  Serious: Yes (Other)
  Sender: FDA-Public Use
  Company Number: US-AMGEN-USASP2012009764

PATIENT
  Age: 46 Year
  Sex: Female
  Weight: 81.633 kg

DRUGS (7)
  1. IRON [Concomitant]
  2. HERCEPTIN [Concomitant]
     Indication: BREAST CANCER
     Dosage: 480 MG, Q3WK
     Route: 042
     Dates: start: 20110120
  3. LUPRON [Concomitant]
     Indication: BREAST CANCER
     Dosage: 7.5 MG, UNK
     Route: 030
     Dates: start: 20110922
  4. VITAMIN D [Concomitant]
  5. XGEVA [Suspect]
     Indication: METASTASES TO BONE
     Dosage: 120 MG, Q4WK
     Route: 058
     Dates: start: 20110127
  6. TAMOXIFEN CITRATE [Concomitant]
     Indication: BREAST CANCER
     Dosage: 20 MG, UNK
     Route: 048
     Dates: start: 20110922
  7. ANTACID TAB [Concomitant]

REACTIONS (4)
  - OCULAR TOXICITY [None]
  - IRITIS [None]
  - VISION BLURRED [None]
  - CYSTOID MACULAR OEDEMA [None]
